FAERS Safety Report 4890054-0 (Version None)
Quarter: 2006Q1

REPORT INFORMATION
  Report Type: 
  Country: None (occurrence: None)
  Receive Date: 20060120
  Receipt Date: 20060104
  Transmission Date: 20060701
  Serious: Yes (Hospitalization)
  Sender: FDA-Public Use
  Company Number: DSA_60617_2006

PATIENT
  Age: 49 Year
  Sex: Female

DRUGS (1)
  1. DIHYDROERGOTAMINE MESYLATE [Suspect]
     Dosage: DF DAILY

REACTIONS (1)
  - CARDIAC VALVE DISEASE [None]
